FAERS Safety Report 14364379 (Version 1)
Quarter: 2018Q1

REPORT INFORMATION
  Report Type: Spontaneous
  Country: US (occurrence: US)
  Receive Date: 20180106
  Receipt Date: 20180106
  Transmission Date: 20180509
  Serious: Yes (Hospitalization)
  Sender: FDA-Public Use
  Company Number: None

PATIENT
  Age: 37 Year
  Sex: Male
  Weight: 122.2 kg

DRUGS (4)
  1. 5-FLUOROURACIL (5-FU) [Suspect]
     Active Substance: FLUOROURACIL
     Dates: end: 20171205
  2. CAMPTOSAR [Suspect]
     Active Substance: IRINOTECAN HYDROCHLORIDE
     Dates: end: 20171205
  3. LEUCOVORIN CALCIUM. [Suspect]
     Active Substance: LEUCOVORIN CALCIUM
     Dates: end: 20171205
  4. ELOXATIN [Suspect]
     Active Substance: OXALIPLATIN
     Dates: end: 20171205

REACTIONS (9)
  - Cholangitis [None]
  - Device occlusion [None]
  - Dyspepsia [None]
  - Hepatic enzyme increased [None]
  - Pancreatic duct dilatation [None]
  - Jaundice [None]
  - Vomiting [None]
  - Pyrexia [None]
  - Diverticulitis [None]

NARRATIVE: CASE EVENT DATE: 20180102
